FAERS Safety Report 6611154-0 (Version None)
Quarter: 2010Q1

REPORT INFORMATION
  Report Type: 
  Country: None (occurrence: None)
  Receive Date: 20100302
  Receipt Date: 20100302
  Transmission Date: 20100710
  Serious: Yes (Death, Hospitalization)
  Sender: FDA-Public Use
  Company Number: None

PATIENT
  Age: 85 Year
  Weight: 52 kg

DRUGS (9)
  1. ASPIRIN [Suspect]
     Indication: CEREBROVASCULAR ACCIDENT
     Dosage: 81 MG DAILY PO CHRONIC
     Route: 048
  2. COUMADIN [Suspect]
     Indication: ATRIAL FIBRILLATION
     Dosage: 4 MG DAILY PO CHRONIC
     Route: 048
  3. POTASSIUM CHLORIDE [Concomitant]
  4. M.V.I. [Concomitant]
  5. ICAPS [Concomitant]
  6. LASIX [Concomitant]
  7. ENABLEX [Concomitant]
  8. BONIVA [Concomitant]
  9. COREG [Concomitant]

REACTIONS (7)
  - CORNEAL REFLEX DECREASED [None]
  - HAEMORRHAGE INTRACRANIAL [None]
  - RENAL FAILURE [None]
  - RESPIRATORY FAILURE [None]
  - TROPONIN INCREASED [None]
  - UNRESPONSIVE TO STIMULI [None]
  - UPPER GASTROINTESTINAL HAEMORRHAGE [None]
